FAERS Safety Report 5007221-8 (Version None)
Quarter: 2006Q1

REPORT INFORMATION
  Report Type: 
  Country: None (occurrence: None)
  Receive Date: 20060320
  Receipt Date: 20050419
  Transmission Date: 20060701
  Serious: Yes (Disabling, Other)
  Sender: FDA-Public Use
  Company Number: 2005-04-1774

PATIENT
  Age: 46 Year
  Sex: Female
  Weight: 63.05 kg

DRUGS (3)
  1. PEG-INTRON [Suspect]
     Indication: HEPATITIS C
     Dosage: 120 MCG QW SUBCUTANEOUS
     Route: 058
     Dates: start: 20040715, end: 20041230
  2. REBETOL [Suspect]
     Indication: HEPATITIS C
     Dosage: 1000 MG QD ORAL
     Route: 048
     Dates: start: 20040715, end: 20041230
  3. FOSAMAX [Concomitant]

REACTIONS (5)
  - CUTANEOUS SARCOIDOSIS [None]
  - DRUG INEFFECTIVE [None]
  - NEUTROPENIA [None]
  - PLATELET COUNT DECREASED [None]
  - PRURITUS [None]
